FAERS Safety Report 5751081-4 (Version None)
Quarter: 2008Q2

REPORT INFORMATION
  Report Type: 
  Country: None (occurrence: None)
  Receive Date: 20080528
  Receipt Date: 20080519
  Transmission Date: 20081010
  Serious: Yes (Other)
  Sender: FDA-Public Use
  Company Number: FR-SANOFI-SYNTHELABO-A02200800791

PATIENT
  Sex: Female

DRUGS (2)
  1. PLAQUENIL [Suspect]
     Indication: SYSTEMIC LUPUS ERYTHEMATOSUS
     Route: 048
     Dates: start: 20080211, end: 20080222
  2. PLAQUENIL [Suspect]
     Route: 048
     Dates: start: 20080101

REACTIONS (2)
  - BACK PAIN [None]
  - PAIN IN EXTREMITY [None]
